FAERS Safety Report 7011758-X (Version None)
Quarter: 2010Q3

REPORT INFORMATION
  Report Type: 
  Country: None (occurrence: None)
  Receive Date: 20100923
  Receipt Date: 20090811
  Transmission Date: 20110219
  Serious: No
  Sender: FDA-Public Use
  Company Number: US-WYE-H09762409

PATIENT
  Sex: Female
  Weight: 113.5 kg

DRUGS (6)
  1. PREMARIN [Suspect]
     Indication: BREAST CANCER
     Route: 048
     Dates: start: 20090101
  2. CELEXA [Concomitant]
  3. JANUVIA [Concomitant]
  4. PRAVASTATIN [Concomitant]
  5. NEXIUM [Concomitant]
  6. LASIX [Concomitant]

REACTIONS (5)
  - DEMENTIA [None]
  - DIZZINESS [None]
  - MUSCLE SPASMS [None]
  - SPEECH DISORDER [None]
  - VAGINAL HAEMORRHAGE [None]
